FAERS Safety Report 4999738-7 (Version None)
Quarter: 2006Q2

REPORT INFORMATION
  Report Type: 
  Country: None (occurrence: None)
  Receive Date: 20060511
  Receipt Date: 20060505
  Transmission Date: 20061013
  Serious: Yes (Other)
  Sender: FDA-Public Use
  Company Number: US-GLAXOSMITHKLINE-A0604964A

PATIENT
  Sex: Female

DRUGS (2)
  1. WELLBUTRIN [Suspect]
     Indication: DEPRESSION
     Route: 048
  2. LEXAPRO [Suspect]
     Indication: DEPRESSION
     Route: 048

REACTIONS (6)
  - ADVERSE EVENT [None]
  - ANGER [None]
  - BIPOLAR DISORDER [None]
  - EUPHORIC MOOD [None]
  - FEELING ABNORMAL [None]
  - MANIA [None]
